FAERS Safety Report 5107110-4 (Version None)
Quarter: 2006Q3

REPORT INFORMATION
  Report Type: 
  Country: None (occurrence: None)
  Receive Date: 20060913
  Receipt Date: 20060828
  Transmission Date: 20061208
  Serious: Yes (Death, Hospitalization, Other)
  Sender: FDA-Public Use
  Company Number: US200608006457

PATIENT
  Age: 78 Year
  Sex: Female

DRUGS (3)
  1. FORTEO [Suspect]
     Indication: OSTEOPOROSIS
  2. FORTEO [Concomitant]
  3. WARFARIN SODIUM [Concomitant]

REACTIONS (16)
  - DIALYSIS [None]
  - EXCORIATION [None]
  - EXOSTOSIS [None]
  - INCISION SITE COMPLICATION [None]
  - INTESTINAL OBSTRUCTION [None]
  - OEDEMA PERIPHERAL [None]
  - POST PROCEDURAL COMPLICATION [None]
  - PROCEDURAL COMPLICATION [None]
  - PROCEDURAL SITE REACTION [None]
  - RENAL FAILURE [None]
  - SKIN DISCOLOURATION [None]
  - STRESS [None]
  - SURGICAL PROCEDURE REPEATED [None]
  - THROMBOSIS [None]
  - UNEVALUABLE EVENT [None]
  - WOUND SECRETION [None]
